FAERS Safety Report 9296956 (Version 2)
Quarter: 2015Q4

REPORT INFORMATION
  Report Type: Report from Study
  Country: GB (occurrence: GB)
  Receive Date: 20130518
  Receipt Date: 20151027
  Transmission Date: 20160305
  Serious: Yes (Hospitalization)
  Sender: FDA-Public Use
  Company Number: GB-ROCHE-1202667

PATIENT
  Age: 62 Year
  Sex: Female
  Weight: 117 kg

DRUGS (2)
  1. RITUXIMAB [Suspect]
     Active Substance: RITUXIMAB
     Indication: RHEUMATOID ARTHRITIS
     Dosage: LAST DOSE PRIOR TO SAE 01/NOV/2012, LAST DOSE PRIOR TO SAE 22/MAY/2014.
     Route: 065
     Dates: start: 20120314
  2. HYDROXYCHLOROQUINE [Concomitant]
     Active Substance: HYDROXYCHLOROQUINE

REACTIONS (8)
  - Urinary tract infection [Unknown]
  - Local swelling [Recovered/Resolved]
  - Fatigue [Unknown]
  - Decreased appetite [Unknown]
  - Lower respiratory tract infection [Unknown]
  - Asthenia [Unknown]
  - Ventricular tachycardia [Unknown]
  - Pneumonia [Unknown]

NARRATIVE: CASE EVENT DATE: 20121205
